FAERS Safety Report 10419417 (Version 5)
Quarter: 2015Q1

REPORT INFORMATION
  Report Type: Report from Study
  Country: AU (occurrence: AU)
  Receive Date: 20140829
  Receipt Date: 20150202
  Transmission Date: 20150720
  Serious: Yes (Death, Hospitalization, Other)
  Sender: FDA-Public Use
  Company Number: PHHY2014AU104604

PATIENT
  Age: 55 Year
  Sex: Female

DRUGS (2)
  1. LDK378 [Suspect]
     Active Substance: CERITINIB
     Indication: LUNG ADENOCARCINOMA METASTATIC
     Route: 048
     Dates: start: 201407
  2. LDK378 [Suspect]
     Active Substance: CERITINIB
     Indication: NON-SMALL CELL LUNG CANCER
     Dosage: 600 MG, QD
     Route: 048
     Dates: start: 201407

REACTIONS (10)
  - Non-small cell lung cancer [Fatal]
  - Somnolence [Fatal]
  - Eastern Cooperative Oncology Group performance status worsened [Not Recovered/Not Resolved]
  - Asthenia [Not Recovered/Not Resolved]
  - Malignant neoplasm progression [Fatal]
  - Malaise [Recovering/Resolving]
  - Metastases to central nervous system [Fatal]
  - Pulmonary embolism [Not Recovered/Not Resolved]
  - Nausea [Recovering/Resolving]
  - Cerebrovascular disorder [Fatal]

NARRATIVE: CASE EVENT DATE: 20140910
